FAERS Safety Report 16868488 (Version 20)
Quarter: 2022Q4

REPORT INFORMATION
  Report Type: Spontaneous
  Country: US (occurrence: US)
  Receive Date: 20190930
  Receipt Date: 20221007
  Transmission Date: 20230112
  Serious: Yes (Other)
  Sender: FDA-Public Use
  Company Number: US-INCYTE CORPORATION-2019IN009709

PATIENT

DRUGS (25)
  1. JAKAFI [Suspect]
     Active Substance: RUXOLITINIB
     Indication: Polycythaemia vera
     Dosage: 15 MILLIGRAM, BID
     Route: 048
     Dates: start: 20170327
  2. JAKAFI [Suspect]
     Active Substance: RUXOLITINIB
     Dosage: 15 MILLIGRAM, BID
     Route: 048
     Dates: start: 20170327
  3. JAKAFI [Suspect]
     Active Substance: RUXOLITINIB
     Dosage: 15 MILLIGRAM, BID
     Route: 048
     Dates: start: 20170327
  4. JAKAFI [Suspect]
     Active Substance: RUXOLITINIB
     Dosage: 15 MILLIGRAM, BID
     Route: 048
     Dates: start: 20170301
  5. JAKAFI [Suspect]
     Active Substance: RUXOLITINIB
     Dosage: 15 MILLIGRAM, BID
     Route: 048
  6. JAKAFI [Suspect]
     Active Substance: RUXOLITINIB
     Dosage: 15 MILLIGRAM, BID
     Route: 048
  7. JAKAFI [Suspect]
     Active Substance: RUXOLITINIB
     Dosage: 15 MILLIGRAM, BID
     Route: 048
  8. JAKAFI [Suspect]
     Active Substance: RUXOLITINIB
     Dosage: 15 MILLIGRAM, BID
     Route: 048
  9. JAKAFI [Suspect]
     Active Substance: RUXOLITINIB
     Dosage: 15 MILLIGRAM, BID
     Route: 048
     Dates: start: 20200214
  10. MODERNA COVID-19 VACCINE [Suspect]
     Active Substance: ELASOMERAN
     Indication: Product used for unknown indication
     Dosage: FIRST SHOT
     Route: 065
  11. MODERNA COVID-19 VACCINE [Suspect]
     Active Substance: ELASOMERAN
     Dosage: SECOND SHOT
     Route: 065
  12. ADVIL                              /00044201/ [Concomitant]
     Indication: Product used for unknown indication
     Route: 065
  13. LIPITOR [Concomitant]
     Active Substance: ATORVASTATIN CALCIUM
     Indication: Product used for unknown indication
     Route: 065
  14. VALACYCLOVIR [Concomitant]
     Active Substance: VALACYCLOVIR HYDROCHLORIDE
     Indication: Product used for unknown indication
     Route: 065
  15. AMOXICILLIN [Concomitant]
     Active Substance: AMOXICILLIN
     Indication: Product used for unknown indication
     Route: 065
  16. CLARITIN                           /00917501/ [Concomitant]
     Indication: Product used for unknown indication
     Dosage: 10 MILLIGRAM
     Route: 065
  17. FLOMAX                             /01280302/ [Concomitant]
     Indication: Product used for unknown indication
     Route: 065
  18. ALLOPURINOL [Concomitant]
     Active Substance: ALLOPURINOL
     Indication: Product used for unknown indication
     Dosage: 300 MILLIGRAM
     Route: 065
  19. OXYCODONE [Concomitant]
     Active Substance: OXYCODONE
     Indication: Product used for unknown indication
     Route: 065
  20. ASPIRIN [Concomitant]
     Active Substance: ASPIRIN
     Indication: Product used for unknown indication
     Dosage: 325 MILLIGRAM
     Route: 065
  21. VITAMIN C [Concomitant]
     Active Substance: ASCORBIC ACID
     Indication: Product used for unknown indication
     Dosage: 1000 MILLIGRAM
     Route: 065
  22. VITAMINS NOS [Concomitant]
     Active Substance: VITAMINS
     Indication: Product used for unknown indication
     Dosage: ONCE A WEEK
     Route: 065
  23. PROBIOTICS NOS [Concomitant]
     Active Substance: PROBIOTICS NOS
     Indication: Product used for unknown indication
     Dosage: ONCE A WEEK
     Route: 065
  24. COENZYME Q10 [Concomitant]
     Active Substance: DIETARY SUPPLEMENT\UBIDECARENONE
     Indication: Memory impairment
     Dosage: TWICE A WEEK
     Route: 065
  25. STOOL SOFTENER (DOCUSATE) [Concomitant]
     Active Substance: DOCUSATE
     Indication: Product used for unknown indication
     Route: 065

REACTIONS (35)
  - Ophthalmic herpes zoster [Unknown]
  - Loss of consciousness [Unknown]
  - Blindness transient [Recovered/Resolved]
  - Neuropathy peripheral [Not Recovered/Not Resolved]
  - Hypersensitivity [Unknown]
  - Mass [Unknown]
  - Nerve injury [Recovering/Resolving]
  - Fall [Unknown]
  - Tooth fracture [Not Recovered/Not Resolved]
  - Haemorrhoids [Unknown]
  - Tension [Unknown]
  - Pain in extremity [Not Recovered/Not Resolved]
  - Rash macular [Unknown]
  - Calcinosis [Unknown]
  - Neck injury [Recovering/Resolving]
  - Back injury [Recovering/Resolving]
  - Post herpetic neuralgia [Not Recovered/Not Resolved]
  - Pyrexia [Not Recovered/Not Resolved]
  - Toothache [Unknown]
  - Dental caries [Not Recovered/Not Resolved]
  - Teeth brittle [Unknown]
  - Rash [Not Recovered/Not Resolved]
  - Fungal skin infection [Not Recovered/Not Resolved]
  - Fatigue [Unknown]
  - Back pain [Recovered/Resolved]
  - Tooth infection [Not Recovered/Not Resolved]
  - Somnolence [Not Recovered/Not Resolved]
  - Tooth loss [Not Recovered/Not Resolved]
  - Arthralgia [Not Recovered/Not Resolved]
  - Tooth disorder [Unknown]
  - Hordeolum [Unknown]
  - Constipation [Recovering/Resolving]
  - Herpes zoster [Unknown]
  - Weight increased [Unknown]
  - Muscle spasms [Not Recovered/Not Resolved]

NARRATIVE: CASE EVENT DATE: 20190801
